FAERS Safety Report 5964232-3 (Version None)
Quarter: 2008Q4

REPORT INFORMATION
  Report Type: 
  Country: None (occurrence: None)
  Receive Date: 20081124
  Receipt Date: 20081114
  Transmission Date: 20090506
  Serious: Yes (Other)
  Sender: FDA-Public Use
  Company Number: GB-PFIZER INC-2008094514

PATIENT
  Sex: Male

DRUGS (6)
  1. DETRUSITOL XL [Suspect]
  2. LANSOPRAZOLE [Concomitant]
     Route: 048
  3. SERTRALINE [Concomitant]
     Route: 048
  4. VALPROATE SODIUM [Concomitant]
     Route: 048
  5. AMLODIPINE [Concomitant]
  6. SIMVASTATIN [Concomitant]

REACTIONS (2)
  - CEREBROVASCULAR ACCIDENT [None]
  - DYSPHAGIA [None]
